FAERS Safety Report 22338398 (Version 3)
Quarter: 2023Q2

REPORT INFORMATION
  Report Type: Spontaneous
  Country: US (occurrence: None)
  Receive Date: 20230518
  Receipt Date: 20230531
  Transmission Date: 20230722
  Serious: Yes (Death, Life-Threatening, Hospitalization, Disabling, Other)
  Sender: FDA-Public Use
  Company Number: 2023A111900

PATIENT
  Age: 24027 Day
  Sex: Male
  Weight: 88.5 kg

DRUGS (7)
  1. IMFINZI [Suspect]
     Active Substance: DURVALUMAB
     Indication: Hepatocellular carcinoma
     Dosage: 1500.0MG UNKNOWN
     Route: 042
     Dates: start: 20230314, end: 20230314
  2. IMJUDO [Suspect]
     Active Substance: TREMELIMUMAB-ACTL
     Indication: Hepatocellular carcinoma
     Route: 042
     Dates: start: 20230314, end: 20230314
  3. OPDIVO [Concomitant]
     Active Substance: NIVOLUMAB
  4. YERVOY [Concomitant]
     Active Substance: IPILIMUMAB
  5. AVASTIN [Concomitant]
     Active Substance: BEVACIZUMAB
  6. TECENTRIQ [Concomitant]
     Active Substance: ATEZOLIZUMAB
  7. CABOMETYX [Concomitant]
     Active Substance: CABOZANTINIB S-MALATE

REACTIONS (7)
  - Paralysis [Fatal]
  - Myositis [Fatal]
  - Rhabdomyolysis [Fatal]
  - Renal failure [Unknown]
  - Hepatic failure [Unknown]
  - Abdominal pain lower [Unknown]
  - Cardio-respiratory arrest [Fatal]

NARRATIVE: CASE EVENT DATE: 20230324
